FAERS Safety Report 4337496-X (Version None)
Quarter: 2004Q2

REPORT INFORMATION
  Report Type: 
  Country: None (occurrence: None)
  Receive Date: 20040412
  Receipt Date: 20040412
  Transmission Date: 20050107
  Serious: Yes (Life-Threatening, Disabling)
  Sender: FDA-Public Use
  Company Number: None

PATIENT
  Sex: Female
  Weight: 102.0593 kg

DRUGS (18)
  1. PRAVACHOL [Suspect]
     Indication: RHABDOMYOLYSIS
     Dosage: 20 MG 1 TAB DAIL ORAL
     Route: 048
     Dates: start: 20040112, end: 20040326
  2. HYDROCODONE BITARTRATE AND ACETAMINOPHEN [Concomitant]
  3. AMITRIPTYLINE HCL [Concomitant]
  4. OMEPRAZOLE [Concomitant]
  5. THERA-PLUS/ MINTERALS KROEGER MULTI VITAMIN/ MIN [Concomitant]
  6. NAPROXEN SODIUM [Concomitant]
  7. NASONEX [Concomitant]
  8. BECLOVENT [Concomitant]
  9. ALBUTEROL [Concomitant]
  10. VICKS DAYQUIL SINUS PRESSURE + PAIN RELIEF W/ IBUPROFEN [Concomitant]
  11. ADVIL [Concomitant]
  12. CEPACOL [Concomitant]
  13. SUDAFED S.A. [Concomitant]
  14. TYLENOL (CAPLET) [Concomitant]
  15. MAXZIDE [Concomitant]
  16. PROMETHAZINE [Concomitant]
  17. MAXALT [Concomitant]
  18. IMITREX [Concomitant]

REACTIONS (38)
  - ABDOMINAL DISTENSION [None]
  - ABDOMINAL PAIN UPPER [None]
  - ALCOHOL INTOLERANCE [None]
  - ARTHRALGIA [None]
  - BACK PAIN [None]
  - CHEST PAIN [None]
  - CHROMATURIA [None]
  - DIZZINESS [None]
  - DRUG TOLERANCE DECREASED [None]
  - DRY SKIN [None]
  - DYSURIA [None]
  - FATIGUE [None]
  - GASTRITIS [None]
  - GASTROOESOPHAGEAL REFLUX DISEASE [None]
  - HEADACHE [None]
  - HYPERHIDROSIS [None]
  - HYPOAESTHESIA [None]
  - INFLUENZA LIKE ILLNESS [None]
  - INSOMNIA [None]
  - JAUNDICE [None]
  - MENSTRUAL DISORDER [None]
  - MUSCLE SPASMS [None]
  - MUSCLE TWITCHING [None]
  - MUSCULAR WEAKNESS [None]
  - MYALGIA [None]
  - NAUSEA [None]
  - NEURALGIA [None]
  - OEDEMA [None]
  - PYREXIA [None]
  - RASH [None]
  - RENAL PAIN [None]
  - SWELLING [None]
  - SWELLING FACE [None]
  - TINNITUS [None]
  - URINARY TRACT INFECTION [None]
  - VERTIGO [None]
  - VISION BLURRED [None]
  - WEIGHT INCREASED [None]
